FAERS Safety Report 14081324 (Version 6)
Quarter: 2018Q3

REPORT INFORMATION
  Report Type: Spontaneous
  Country: US (occurrence: US)
  Receive Date: 20171012
  Receipt Date: 20180928
  Transmission Date: 20181010
  Serious: Yes (Hospitalization)
  Sender: FDA-Public Use
  Company Number: US-ACTELION-A-NJ2017-160724

PATIENT
  Age: 64 Year
  Sex: Female

DRUGS (5)
  1. OPSUMIT [Suspect]
     Active Substance: MACITENTAN
     Indication: PULMONARY ARTERIAL HYPERTENSION
     Dosage: 10 MG, QD
     Route: 048
     Dates: start: 20170801
  2. LORAZEPAM. [Concomitant]
     Active Substance: LORAZEPAM
  3. OXYCODONE [Concomitant]
     Active Substance: OXYCODONE
  4. ADCIRCA [Concomitant]
     Active Substance: TADALAFIL
  5. FENTANYL. [Concomitant]
     Active Substance: FENTANYL

REACTIONS (6)
  - Gastrointestinal haemorrhage [Unknown]
  - Oedema [Not Recovered/Not Resolved]
  - Drug dose omission [Unknown]
  - Fatigue [Not Recovered/Not Resolved]
  - Oedema peripheral [Unknown]
  - Atrial fibrillation [Unknown]

NARRATIVE: CASE EVENT DATE: 201709
